FAERS Safety Report 10265192 (Version 1)
Quarter: 2014Q2

REPORT INFORMATION
  Report Type: Spontaneous
  Country: GB (occurrence: GB)
  Receive Date: 20140627
  Receipt Date: 20140627
  Transmission Date: 20141212
  Serious: Yes (Other)
  Sender: FDA-Public Use
  Company Number: GB-AMGEN INC.-GBRSP2014046949

PATIENT
  Age: 53 Year
  Sex: Female

DRUGS (14)
  1. XGEVA [Suspect]
     Indication: BREAST CANCER METASTATIC
     Route: 058
  2. ABSTRAL [Concomitant]
  3. ADCAL D3 [Concomitant]
  4. AMITRIPTYLINE [Concomitant]
  5. DEXAMETHASONE [Concomitant]
  6. GABAPENTIN [Concomitant]
  7. HYDROMORPHONE [Concomitant]
  8. LETROZOLE [Concomitant]
  9. METOCLOPRAMIDE [Concomitant]
  10. PARACETAMOL [Concomitant]
  11. QUININE SULFATE [Concomitant]
  12. WARFARIN [Concomitant]
  13. ZOPICLONE [Concomitant]
  14. TRAZODONE [Concomitant]

REACTIONS (3)
  - Erythema [Recovering/Resolving]
  - Pyrexia [Unknown]
  - Peripheral swelling [Unknown]
